FAERS Safety Report 16721190 (Version 1)
Quarter: 2019Q3

REPORT INFORMATION
  Report Type: Spontaneous
  Country: US (occurrence: US)
  Receive Date: 20190820
  Receipt Date: 20190820
  Transmission Date: 20191005
  Serious: Yes (Hospitalization)
  Sender: FDA-Public Use
  Company Number: US-ALLERGAN-1933604US

PATIENT
  Sex: Male

DRUGS (9)
  1. FENOFIBRATE. [Concomitant]
     Active Substance: FENOFIBRATE
     Indication: CARDIOMETABOLIC SYNDROME
     Dosage: 145 MG, QD
  2. OLANZAPINE. [Suspect]
     Active Substance: OLANZAPINE
     Dosage: 2.5 MG, QD
     Route: 065
     Dates: start: 2011, end: 201110
  3. OLANZAPINE. [Suspect]
     Active Substance: OLANZAPINE
     Dosage: 7.5 MG, QD
     Route: 065
     Dates: end: 2011
  4. METFORMIN [Concomitant]
     Active Substance: METFORMIN HYDROCHLORIDE
     Indication: CARDIOMETABOLIC SYNDROME
     Dosage: 500 MG, BID
  5. ASENAPINE MALEATE UNK [Suspect]
     Active Substance: ASENAPINE MALEATE
     Indication: SCHIZOAFFECTIVE DISORDER
     Dosage: 10 MG, QD
     Route: 065
     Dates: start: 2011, end: 201110
  6. ASENAPINE MALEATE UNK [Suspect]
     Active Substance: ASENAPINE MALEATE
     Dosage: 5 MG, QD
     Route: 065
     Dates: start: 201108
  7. OMEGA-3 FATTY ACIDS [Concomitant]
     Active Substance: OMEGA-3 FATTY ACIDS
     Indication: CARDIOMETABOLIC SYNDROME
     Dosage: 2 G, QD
  8. OLANZAPINE. [Suspect]
     Active Substance: OLANZAPINE
     Indication: SCHIZOAFFECTIVE DISORDER
     Dosage: 5 MG, QD
     Route: 065
     Dates: start: 201110
  9. PIOGLITAZONE. [Concomitant]
     Active Substance: PIOGLITAZONE
     Indication: CARDIOMETABOLIC SYNDROME
     Dosage: 30 MG, QD

REACTIONS (2)
  - Schizoaffective disorder [Recovering/Resolving]
  - Drug ineffective [Unknown]

NARRATIVE: CASE EVENT DATE: 2011
